FAERS Safety Report 9902416 (Version 3)
Quarter: 2015Q3

REPORT INFORMATION
  Report Type: Spontaneous
  Country: US (occurrence: US)
  Receive Date: 20140217
  Receipt Date: 20150810
  Transmission Date: 20151125
  Serious: Yes (Hospitalization)
  Sender: FDA-Public Use
  Company Number: US-GILEAD-2011-0046758

PATIENT
  Age: 51 Year
  Sex: Female

DRUGS (3)
  1. LETAIRIS [Suspect]
     Active Substance: AMBRISENTAN
     Indication: PULMONARY HYPERTENSION
     Dosage: 10 MG, UNK
     Route: 048
     Dates: start: 20090423
  2. LETAIRIS [Suspect]
     Active Substance: AMBRISENTAN
     Indication: CHRONIC KIDNEY DISEASE
  3. LETAIRIS [Suspect]
     Active Substance: AMBRISENTAN
     Indication: MITRAL VALVE DISEASE

REACTIONS (1)
  - Abdominal pain upper [Unknown]
